FAERS Safety Report 7650793-5 (Version None)
Quarter: 2011Q3

REPORT INFORMATION
  Report Type: 
  Country: None (occurrence: None)
  Receive Date: 20110802
  Receipt Date: 20110728
  Transmission Date: 20111222
  Serious: Yes (Other)
  Sender: FDA-Public Use
  Company Number: ES-MERCK-1107ESP00042

PATIENT
  Age: 18 Month
  Sex: Male

DRUGS (3)
  1. ALBUTEROL SULFATE [Concomitant]
     Indication: ASTHMA
     Route: 055
  2. MONTELUKAST SODIUM [Concomitant]
     Indication: ASTHMA
     Route: 048
     Dates: start: 20101221, end: 20110201
  3. SINGULAIR [Suspect]
     Indication: ASTHMA
     Route: 048
     Dates: start: 20110201, end: 20110401

REACTIONS (2)
  - HEAD BANGING [None]
  - INSOMNIA [None]
